FAERS Safety Report 11122444 (Version 1)
Quarter: 2015Q2

REPORT INFORMATION
  Report Type: Spontaneous
  Country: US (occurrence: None)
  Receive Date: 20150518
  Receipt Date: 20150518
  Transmission Date: 20150821
  Serious: Yes (Disabling)
  Sender: FDA-Public Use
  Company Number: None

PATIENT
  Age: 45 Year
  Sex: Male
  Weight: 80.74 kg

DRUGS (7)
  1. NALTREXONE (NALTREXONE) [Suspect]
     Active Substance: NALTREXONE
     Indication: ALCOHOLISM
     Dosage: 1/2 A PILL TWIICE DAILY?
     Route: 048
     Dates: start: 20150407, end: 20150501
  2. TRAZODONE [Concomitant]
     Active Substance: TRAZODONE HYDROCHLORIDE
  3. BUSPIRONE [Concomitant]
     Active Substance: BUSPIRONE HYDROCHLORIDE
  4. MULTI VITAMIN [Concomitant]
     Active Substance: VITAMINS
  5. LEXAPRO [Concomitant]
     Active Substance: ESCITALOPRAM OXALATE
  6. LEVOTHYROXINE [Concomitant]
     Active Substance: LEVOTHYROXINE
  7. PRILOSEC [Concomitant]
     Active Substance: OMEPRAZOLE MAGNESIUM

REACTIONS (1)
  - Headache [None]

NARRATIVE: CASE EVENT DATE: 20150420
